FAERS Safety Report 6715796-3 (Version None)
Quarter: 2010Q2

REPORT INFORMATION
  Report Type: 
  Country: None (occurrence: None)
  Receive Date: 20100507
  Receipt Date: 20100430
  Transmission Date: 20101027
  Serious: Yes (Hospitalization)
  Sender: FDA-Public Use
  Company Number: FR-ELI_LILLY_AND_COMPANY-FR201004008337

PATIENT
  Sex: Female

DRUGS (13)
  1. BYETTA [Suspect]
     Indication: DIABETES MELLITUS
     Dosage: 5 UG, 2/D
     Route: 065
     Dates: start: 20100119, end: 20100101
  2. BYETTA [Suspect]
     Dosage: 10 UG, 2/D
     Route: 065
     Dates: start: 20100227, end: 20100323
  3. INSULATARD [Concomitant]
     Dosage: UNK, UNKNOWN
     Route: 058
  4. INSULATARD [Concomitant]
     Dosage: UNK, AT NIGHT
     Route: 058
     Dates: start: 20100325
  5. LEVOTHYROX [Concomitant]
     Dosage: UNK, UNKNOWN
     Route: 065
     Dates: start: 20000101
  6. ZOCOR [Concomitant]
     Dosage: UNK, UNKNOWN
     Route: 065
     Dates: start: 20000101
  7. NISISCO [Concomitant]
     Dosage: UNK, UNKNOWN
     Route: 065
     Dates: start: 20000101
  8. COLCHIMAX [Concomitant]
     Dosage: UNK, UNKNOWN
     Route: 065
     Dates: start: 20070101
  9. TILCOTIL [Concomitant]
     Dosage: UNK, UNKNOWN
     Route: 065
     Dates: start: 20070101, end: 20100323
  10. OMEPRAZOLE [Concomitant]
     Dosage: UNK, UNKNOWN
     Route: 065
  11. PAROXETINE HCL [Concomitant]
     Dosage: UNK, UNKNOWN
     Route: 065
     Dates: start: 20020101
  12. METFORMIN HCL [Concomitant]
     Dosage: UNK, UNKNOWN
     Route: 065
  13. METFORMIN HCL [Concomitant]
     Dosage: UNK, UNKNOWN
     Route: 065
     Dates: start: 20100325

REACTIONS (6)
  - ABDOMINAL PAIN [None]
  - BLOOD CREATININE INCREASED [None]
  - EOSINOPHILIA [None]
  - LIPASE INCREASED [None]
  - NAUSEA [None]
  - OFF LABEL USE [None]
